FAERS Safety Report 10438025 (Version 1)
Quarter: 2014Q3

REPORT INFORMATION
  Report Type: Spontaneous
  Country: US (occurrence: US)
  Receive Date: 20140908
  Receipt Date: 20140908
  Transmission Date: 20150326
  Serious: No
  Sender: FDA-Public Use
  Company Number: US-BRISTOL-MYERS SQUIBB COMPANY-19828839

PATIENT
  Age: 62 Year
  Sex: Male

DRUGS (1)
  1. ABILIFY [Suspect]
     Active Substance: ARIPIPRAZOLE
     Dosage: 5MG AND A 2MG TABLET EACH DAY. ALSO TOOK 10 MG. DOSE REDUCED TO 7 MG

REACTIONS (1)
  - Weight increased [Unknown]
